FAERS Safety Report 9450487 (Version 3)
Quarter: 2013Q3

REPORT INFORMATION
  Report Type: Spontaneous
  Country: JP (occurrence: None)
  Receive Date: 20130807
  Receipt Date: 20130918
  Transmission Date: 20140515
  Serious: Yes (Hospitalization, Other)
  Sender: FDA-Public Use
  Company Number: 2013P1015093

PATIENT
  Age: 52 Year
  Sex: Female

DRUGS (7)
  1. ZANTAC [Suspect]
     Indication: PREMEDICATION
     Route: 042
     Dates: start: 201106, end: 20111125
  2. ZANTAC [Suspect]
     Indication: PROPHYLAXIS
     Route: 042
     Dates: start: 201106, end: 20111125
  3. DECADRON [Concomitant]
  4. KYTRIL [Concomitant]
  5. TAXOL [Concomitant]
  6. PARAPLATIN [Concomitant]
  7. GEMZAR [Concomitant]

REACTIONS (14)
  - Respiratory depression [None]
  - Shock [None]
  - Burning sensation [None]
  - Hyperhidrosis [None]
  - Abdominal distension [None]
  - Cyanosis [None]
  - Vomiting [None]
  - Wheezing [None]
  - Abdominal distension [None]
  - Blood pressure decreased [None]
  - Dyspepsia [None]
  - Ovarian cancer [None]
  - Malignant ascites [None]
  - Recurrent cancer [None]
